FAERS Safety Report 7148022-4 (Version None)
Quarter: 2010Q4

REPORT INFORMATION
  Report Type: 
  Country: None (occurrence: None)
  Receive Date: 20101206
  Receipt Date: 20101206
  Transmission Date: 20110411
  Serious: No
  Sender: FDA-Public Use
  Company Number: None

PATIENT
  Age: 54 Year
  Sex: Female
  Weight: 58.0604 kg

DRUGS (1)
  1. PREVACID [Suspect]
     Indication: DYSPEPSIA
     Dosage: 1 CAPSULE EVERY 24 HOURS PO
     Route: 048
     Dates: start: 20101205, end: 20101206

REACTIONS (6)
  - ABASIA [None]
  - ABDOMINAL PAIN [None]
  - CHEST PAIN [None]
  - EMOTIONAL DISTRESS [None]
  - MYALGIA [None]
  - PAIN [None]
